FAERS Safety Report 6492848-7 (Version None)
Quarter: 2009Q4

REPORT INFORMATION
  Report Type: 
  Country: None (occurrence: None)
  Receive Date: 20091211
  Receipt Date: 20091211
  Transmission Date: 20100525
  Serious: Yes (Life-Threatening)
  Sender: FDA-Public Use
  Company Number: None

PATIENT
  Age: 58 Year
  Sex: Female
  Weight: 105.2345 kg

DRUGS (1)
  1. DILTIAZEM HCL [Suspect]

REACTIONS (21)
  - AFFECT LABILITY [None]
  - ANGER [None]
  - ASTHENIA [None]
  - BALANCE DISORDER [None]
  - BLOOD PRESSURE INCREASED [None]
  - CHEST PAIN [None]
  - CONFUSIONAL STATE [None]
  - CONTUSION [None]
  - COUGH [None]
  - CRYING [None]
  - DYSPNOEA [None]
  - EPISTAXIS [None]
  - FEELING HOT [None]
  - FLUSHING [None]
  - HEADACHE [None]
  - HEART RATE INCREASED [None]
  - HEART RATE IRREGULAR [None]
  - INSOMNIA [None]
  - MALAISE [None]
  - NAUSEA [None]
  - VISION BLURRED [None]
